FAERS Safety Report 21469777 (Version 1)
Quarter: 2022Q4

REPORT INFORMATION
  Report Type: Spontaneous
  Country: US (occurrence: US)
  Receive Date: 20221018
  Receipt Date: 20221018
  Transmission Date: 20230113
  Serious: Yes (Hospitalization)
  Sender: FDA-Public Use
  Company Number: US-JNJFOC-20221026238

PATIENT
  Sex: Female

DRUGS (1)
  1. OPSUMIT [Suspect]
     Active Substance: MACITENTAN
     Indication: Product used for unknown indication
     Route: 048

REACTIONS (6)
  - Dyspnoea [Unknown]
  - Urinary tract infection [Unknown]
  - Influenza like illness [Unknown]
  - Vomiting [Unknown]
  - Pneumonia [Unknown]
  - Diarrhoea [Unknown]
